FAERS Safety Report 16790811 (Version 1)
Quarter: 2019Q3

REPORT INFORMATION
  Report Type: Spontaneous
  Country: US (occurrence: US)
  Receive Date: 20190719
  Receipt Date: 20190719
  Transmission Date: 20191005
  Serious: No
  Sender: FDA-Public Use
  Company Number: None

PATIENT
  Age: 62 Year
  Sex: Female

DRUGS (1)
  1. AUBAGIO [Suspect]
     Active Substance: TERIFLUNOMIDE
     Dates: start: 201806

REACTIONS (4)
  - Dry eye [None]
  - Photosensitivity reaction [None]
  - Therapy change [None]
  - Dry mouth [None]

NARRATIVE: CASE EVENT DATE: 20190716
